FAERS Safety Report 17246786 (Version 4)
Quarter: 2025Q3

REPORT INFORMATION
  Report Type: Spontaneous
  Country: US (occurrence: US)
  Receive Date: 20200108
  Receipt Date: 20250728
  Transmission Date: 20251021
  Serious: Yes (Other)
  Sender: PFIZER
  Company Number: US-PFIZER INC-2020002475

PATIENT
  Age: 34 Year
  Sex: Male

DRUGS (2)
  1. FENTANYL CITRATE [Suspect]
     Active Substance: FENTANYL CITRATE
     Route: 045
  2. COCAINE [Suspect]
     Active Substance: COCAINE

REACTIONS (2)
  - Loss of consciousness [Unknown]
  - Overdose [Recovered/Resolved]
